FAERS Safety Report 9843416 (Version 1)
Quarter: 2013Q4

REPORT INFORMATION
  Report Type: Spontaneous
  Country: US (occurrence: None)
  Receive Date: 20131223
  Receipt Date: 20131223
  Transmission Date: 20140711
  Serious: No
  Sender: FDA-Public Use
  Company Number: 220203LEO

PATIENT
  Age: 57 Year
  Sex: Male

DRUGS (2)
  1. PICATO (0.05%) [Suspect]
     Indication: ACTINIC KERATOSIS
     Dosage: 1 IN  1 D TOPICAL
     Dates: start: 20130115
  2. CRESTOR (ROSUVASTATIN) (20MG) [Concomitant]

REACTIONS (3)
  - Application site swelling [None]
  - Incorrect dose administered [None]
  - Incorrect drug administration duration [None]
